FAERS Safety Report 5066260-1 (Version None)
Quarter: 2006Q3

REPORT INFORMATION
  Report Type: 
  Country: None (occurrence: None)
  Receive Date: 20060706
  Receipt Date: 20051115
  Transmission Date: 20061208
  Serious: Yes (Hospitalization)
  Sender: FDA-Public Use
  Company Number: 2037

PATIENT
  Age: 60 Year
  Sex: Female

DRUGS (9)
  1. AVINZA [Suspect]
     Indication: BACK PAIN
     Dosage: 60 MG DAILY PO
     Route: 048
     Dates: start: 20050901, end: 20051001
  2. AVINZA [Suspect]
     Indication: NECK PAIN
     Dosage: 60 MG DAILY PO
     Route: 048
     Dates: start: 20050901, end: 20051001
  3. AVINZA [Suspect]
     Indication: BACK PAIN
     Dosage: 90 MG DAILY PO
     Route: 048
     Dates: start: 20051001, end: 20051001
  4. AVINZA [Suspect]
     Indication: NECK PAIN
     Dosage: 90 MG DAILY PO
     Route: 048
     Dates: start: 20051001, end: 20051001
  5. ACETAMINOPHEN/CODEINE [Concomitant]
  6. ACETAMINOPHEN/OXYCODONE [Concomitant]
  7. GABAPENTIN [Concomitant]
  8. HYDROMORPHONE HCL [Concomitant]
  9. PROCHLORPERAZINE [Concomitant]

REACTIONS (3)
  - COMA [None]
  - CONVULSION [None]
  - HYPOTENSION [None]
